FAERS Safety Report 18968850 (Version 1)
Quarter: 2021Q1

REPORT INFORMATION
  Report Type: Spontaneous
  Country: US (occurrence: US)
  Receive Date: 20210304
  Receipt Date: 20210304
  Transmission Date: 20210420
  Serious: Yes (Hospitalization)
  Sender: FDA-Public Use
  Company Number: None

PATIENT
  Age: 72 Year
  Sex: Male
  Weight: 88.6 kg

DRUGS (8)
  1. KETOTIFEN FUMARATE 0.025% [Concomitant]
  2. HYDROCHLOROTHIAZIDE 50MG [Concomitant]
  3. DEFERASIROX. [Suspect]
     Active Substance: DEFERASIROX
     Indication: CHRONIC MYELOID LEUKAEMIA
     Route: 048
     Dates: start: 20210105, end: 20210304
  4. VITAMIN B12 [Concomitant]
     Active Substance: CYANOCOBALAMIN
  5. ELIQUIS [Concomitant]
     Active Substance: APIXABAN
  6. ALLOPURINOL 300MG [Concomitant]
     Active Substance: ALLOPURINOL
  7. DEFERASIROX. [Suspect]
     Active Substance: DEFERASIROX
     Indication: CHRONIC MYELOID LEUKAEMIA
     Route: 048
     Dates: start: 20210105, end: 20210304
  8. ATENOLOL 50MG [Concomitant]
     Active Substance: ATENOLOL

REACTIONS (1)
  - Neoplasm malignant [None]

NARRATIVE: CASE EVENT DATE: 20210304
